FAERS Safety Report 4570950-4 (Version None)
Quarter: 2005Q1

REPORT INFORMATION
  Report Type: 
  Country: None (occurrence: None)
  Receive Date: 20050204
  Receipt Date: 20050127
  Transmission Date: 20050727
  Serious: Yes (Hospitalization)
  Sender: FDA-Public Use
  Company Number: FR-MERCK-0501FRA00088

PATIENT
  Age: 84 Year
  Sex: Female

DRUGS (3)
  1. ZOCOR [Suspect]
     Route: 048
     Dates: end: 20050121
  2. AMIODARONE HYDROCHLORIDE [Suspect]
     Route: 048
     Dates: end: 20050101
  3. HYDROCHLOROTHIAZIDE AND LISINOPRIL [Suspect]
     Route: 048

REACTIONS (1)
  - INTERSTITIAL LUNG DISEASE [None]
